FAERS Safety Report 25493192 (Version 2)
Quarter: 2025Q3

REPORT INFORMATION
  Report Type: Spontaneous
  Country: EU (occurrence: EU)
  Receive Date: 20250630
  Receipt Date: 20250711
  Transmission Date: 20251021
  Serious: Yes (Life-Threatening, Hospitalization)
  Sender: TEVA
  Company Number: EU-TEVA-VS-3345608

PATIENT
  Age: 2 Year
  Sex: Male

DRUGS (4)
  1. VERAPAMIL [Suspect]
     Active Substance: VERAPAMIL HYDROCHLORIDE
     Indication: Ventricular tachycardia
     Route: 065
  2. MAGNESIUM OXIDE [Suspect]
     Active Substance: MAGNESIUM OXIDE
     Indication: Ventricular tachycardia
     Route: 065
  3. ADENOSINE [Suspect]
     Active Substance: ADENOSINE
     Indication: Supraventricular tachycardia
     Route: 065
  4. AMIODARONE [Suspect]
     Active Substance: AMIODARONE
     Indication: Ventricular tachycardia
     Route: 065

REACTIONS (3)
  - Drug ineffective [Unknown]
  - Pulseless electrical activity [Recovering/Resolving]
  - Bradycardia [Recovering/Resolving]
